FAERS Safety Report 5079828-3 (Version None)
Quarter: 2006Q3

REPORT INFORMATION
  Report Type: 
  Country: None (occurrence: None)
  Receive Date: 20060808
  Receipt Date: 20060731
  Transmission Date: 20061208
  Serious: Yes (Death, Hospitalization)
  Sender: FDA-Public Use
  Company Number: US-2006-021352

PATIENT
  Age: 42 Year
  Sex: Female

DRUGS (5)
  1. ULTRAVIST 370 [Suspect]
     Indication: COMPUTERISED TOMOGRAM ABDOMEN
     Dosage: 1 DOSE
     Dates: start: 20060713, end: 20060713
  2. FLOLAN [Concomitant]
  3. PLASMA [Concomitant]
  4. VITAMIN K [Concomitant]
  5. RED BLOOD CELLS [Concomitant]

REACTIONS (8)
  - CARDIAC FAILURE ACUTE [None]
  - COAGULOPATHY [None]
  - CONDITION AGGRAVATED [None]
  - DIARRHOEA [None]
  - HEPATIC FAILURE [None]
  - PULMONARY HYPERTENSION [None]
  - RENAL FAILURE [None]
  - RIGHT VENTRICULAR FAILURE [None]
